FAERS Safety Report 24900763 (Version 1)
Quarter: 2025Q1

REPORT INFORMATION
  Report Type: Spontaneous
  Country: US (occurrence: US)
  Receive Date: 20250129
  Receipt Date: 20250129
  Transmission Date: 20250409
  Serious: No
  Sender: MYLAN
  Company Number: US-MYLANLABS-2025M1006232

PATIENT
  Age: 27 Year
  Sex: Female
  Weight: 81.19 kg

DRUGS (1)
  1. XULANE [Suspect]
     Active Substance: ETHINYL ESTRADIOL\NORELGESTROMIN
     Indication: Product used for unknown indication
     Dosage: 150/35 MICROGRAM, QD (PER DAY)
     Route: 062

REACTIONS (3)
  - Intermenstrual bleeding [Recovered/Resolved]
  - Product dose omission issue [Unknown]
  - Product adhesion issue [Unknown]

NARRATIVE: CASE EVENT DATE: 20241101
